FAERS Safety Report 25417046 (Version 1)
Quarter: 2025Q2

REPORT INFORMATION
  Report Type: Spontaneous
  Country: CN (occurrence: CN)
  Receive Date: 20250610
  Receipt Date: 20250610
  Transmission Date: 20250717
  Serious: Yes (Hospitalization, Other)
  Sender: Haleon PLC
  Company Number: CN-HALEON-2246165

PATIENT
  Age: 37 Year
  Sex: Female
  Weight: 55 kg

DRUGS (3)
  1. IBUPROFEN [Suspect]
     Active Substance: IBUPROFEN
     Indication: Intentional overdose
     Route: 048
     Dates: start: 20250607, end: 20250607
  2. CALCIUM CARBONATE\CHOLECALCIFEROL [Suspect]
     Active Substance: CALCIUM CARBONATE\CHOLECALCIFEROL
     Indication: Intentional overdose
     Route: 048
     Dates: start: 20250607, end: 20250607
  3. FOLIC ACID [Suspect]
     Active Substance: FOLIC ACID
     Indication: Intentional overdose
     Route: 048
     Dates: start: 20250607, end: 20250607

REACTIONS (3)
  - Intentional overdose [Unknown]
  - Exposure during pregnancy [Unknown]
  - Toxicity to various agents [Unknown]

NARRATIVE: CASE EVENT DATE: 20250607
